FAERS Safety Report 5578138-5 (Version None)
Quarter: 2007Q4

REPORT INFORMATION
  Report Type: 
  Country: None (occurrence: None)
  Receive Date: 20071227
  Receipt Date: 20071217
  Transmission Date: 20080405
  Serious: Yes (Hospitalization)
  Sender: FDA-Public Use
  Company Number: 2007000647

PATIENT
  Age: 77 Year
  Sex: Female

DRUGS (32)
  1. ERLOTINIB (ERLOTINIB HCL) (TABLET) (ERLOTINIB HCL) [Suspect]
     Indication: NON-SMALL CELL LUNG CANCER
     Dosage: (150 MG, QD), ORAL
     Route: 048
     Dates: start: 20070306
  2. PROPRANOLOL [Concomitant]
  3. AMLODIPINE BESYLATE [Concomitant]
  4. DI ANTALVIC [Concomitant]
  5. FENOFIBRATE [Concomitant]
  6. LEXOMIL (BROMAZEPAM) [Concomitant]
  7. ZOLPIDEM TARTRATE [Concomitant]
  8. DIASEPTYL [Concomitant]
  9. SPASFON (SPASFON) [Concomitant]
  10. IMODIUM [Concomitant]
  11. ARGININE (ARGININE) [Concomitant]
  12. GAVISCON [Concomitant]
  13. OMEPRAZOLE [Concomitant]
  14. ERYFLUID (ERYTHROMYCIN) [Concomitant]
  15. EFFERALGAN (PARACETAMOL) [Concomitant]
  16. INEXIUM [Concomitant]
  17. FERROUS FUMARATE [Concomitant]
  18. AUGMENTIN '125' [Concomitant]
  19. FLAGYL [Concomitant]
  20. ALUMINUM HYDROXIDE AND MAGNESIUM TRISILICATE [Concomitant]
  21. VASTAREL [Concomitant]
  22. VITABACT (PICLOXYDINE DIHYDROCHLORIDE) [Concomitant]
  23. LACRYVISC (CARBOMER) [Concomitant]
  24. VITAMIN A [Concomitant]
  25. LOVENOX (HEPARIN0FRACTION, SODIUM SALT) [Concomitant]
  26. MIDAZOLAM HCL [Concomitant]
  27. CAFFEINE CITRATE [Concomitant]
  28. PREDNISOLONE [Concomitant]
  29. FERROUS SULFATE TAB [Concomitant]
  30. ACETAMINOPHEN [Concomitant]
  31. ACETAMINOPHEN W/ CODEINE [Concomitant]
  32. COVEREX (PERINDOPRIL) [Concomitant]

REACTIONS (2)
  - ABSCESS [None]
  - COLITIS [None]
